FAERS Safety Report 7779842-0 (Version None)
Quarter: 2011Q3

REPORT INFORMATION
  Report Type: 
  Country: None (occurrence: None)
  Receive Date: 20110927
  Receipt Date: 20110919
  Transmission Date: 20111222
  Serious: Yes (Hospitalization, Other)
  Sender: FDA-Public Use
  Company Number: JP-PFIZER INC-2011214148

PATIENT
  Age: 82 Year
  Sex: Male
  Weight: 96 kg

DRUGS (6)
  1. HYDROCORTISONE SODIUM SUCCINATE [Suspect]
     Indication: BRONCHOSPASM
     Dosage: 250 MG, UNK
     Route: 042
  2. METHYLPREDNISOLONE SODIUM SUCCINATE [Interacting]
     Indication: BRONCHOSPASM
     Dosage: UNK
     Route: 042
  3. VECURONIUM BROMIDE [Interacting]
     Indication: MUSCLE RELAXANT THERAPY
     Dosage: 1 MG/HR
     Route: 042
  4. MEROPENEM TRIHYDRATE [Concomitant]
     Indication: PNEUMONIA
     Dosage: 0.5 G, 1X/DAY
  5. METHYLPREDNISOLONE SODIUM SUCCINATE [Interacting]
     Indication: PNEUMONIA
  6. HYDROCORTISONE SODIUM SUCCINATE [Interacting]
     Indication: PNEUMONIA

REACTIONS (5)
  - QUADRIPLEGIA [None]
  - DRUG INTERACTION [None]
  - RHABDOMYOLYSIS [None]
  - RESPIRATORY PARALYSIS [None]
  - MYOPATHY [None]
